FAERS Safety Report 17561980 (Version 4)
Quarter: 2020Q3

REPORT INFORMATION
  Report Type: Report from Study
  Country: FR (occurrence: FR)
  Receive Date: 20200319
  Receipt Date: 20200721
  Transmission Date: 20201102
  Serious: Yes (Other)
  Sender: FDA-Public Use
  Company Number: FR-CELGENEUS-FRA-20200305294

PATIENT
  Age: 71 Year
  Sex: Female
  Weight: 75 kg

DRUGS (9)
  1. LENALIDOMIDE [Suspect]
     Active Substance: LENALIDOMIDE
     Indication: PLASMA CELL MYELOMA
     Dosage: 10 MILLIGRAM
     Route: 048
     Dates: start: 20150608
  2. MLN 9708 [Suspect]
     Active Substance: IXAZOMIB
     Dosage: 4 MILLIGRAM, (BEFORE CYCLE 18)
     Route: 048
  3. LENALIDOMIDE [Suspect]
     Active Substance: LENALIDOMIDE
     Dosage: 10 MILLIGRAM, AFTER CYCLE 18, ON DAYS 1 TO 21.
     Route: 048
     Dates: end: 20200312
  4. MLN 9708 [Suspect]
     Active Substance: IXAZOMIB
     Indication: PLASMA CELL MYELOMA
     Dosage: 3 MILLIGRAM
     Route: 048
     Dates: start: 20150608
  5. MLN 9708 [Suspect]
     Active Substance: IXAZOMIB
     Dosage: 3 MILLIGRAM, AFTER CYCLE 18 ON DAYS 1, 8 AND 15
     Route: 048
     Dates: end: 20200312
  6. LENALIDOMIDE [Suspect]
     Active Substance: LENALIDOMIDE
     Dosage: 25 MILLIGRAM, (BEFORE CYCLE 18)
     Route: 048
  7. DEXAMETHASONE. [Suspect]
     Active Substance: DEXAMETHASONE
     Indication: PLASMA CELL MYELOMA
     Dosage: 40 MILLIGRAM
     Route: 048
     Dates: start: 20150608, end: 20181020
  8. MLN 9708 [Suspect]
     Active Substance: IXAZOMIB
     Dosage: 3 MILLIGRAM
     Route: 048
     Dates: start: 2020
  9. LENALIDOMIDE [Suspect]
     Active Substance: LENALIDOMIDE
     Dosage: 10 MILLIGRAM
     Route: 048
     Dates: start: 2020

REACTIONS (1)
  - Sarcomatoid carcinoma [Recovered/Resolved]

NARRATIVE: CASE EVENT DATE: 20200306
